FAERS Safety Report 7521148-9 (Version None)
Quarter: 2011Q2

REPORT INFORMATION
  Report Type: 
  Country: None (occurrence: None)
  Receive Date: 20110603
  Receipt Date: 20101208
  Transmission Date: 20111010
  Serious: Yes (Disabling)
  Sender: FDA-Public Use
  Company Number: CA-BAYER-2010-000434

PATIENT
  Age: 49 Year
  Sex: Female

DRUGS (2)
  1. CIPRO [Suspect]
     Indication: EAR INFECTION
     Dosage: 250 MG, BID
     Dates: start: 20101026
  2. CIPRO [Suspect]
     Indication: SINUSITIS
     Dosage: 250 MG, BID
     Dates: start: 20100101

REACTIONS (6)
  - CHEST PAIN [None]
  - VERTIGO [None]
  - ARTHRALGIA [None]
  - TENDON PAIN [None]
  - MUSCULAR WEAKNESS [None]
  - MUSCLE SPASMS [None]
